FAERS Safety Report 6110888-4 (Version None)
Quarter: 2009Q1

REPORT INFORMATION
  Report Type: 
  Country: None (occurrence: None)
  Receive Date: 20090311
  Receipt Date: 20090102
  Transmission Date: 20090719
  Serious: No
  Sender: FDA-Public Use
  Company Number: US-KINGPHARMUSA00001-K200900005

PATIENT
  Sex: Male
  Weight: 77.098 kg

DRUGS (6)
  1. ALTACE [Suspect]
     Indication: HYPERTENSION
     Dosage: 5 MG, QD
     Route: 048
  2. LIPITOR [Concomitant]
     Indication: BLOOD CHOLESTEROL INCREASED
     Dosage: 25 MG, QD
     Route: 048
  3. COUMADIN [Concomitant]
     Indication: ATRIAL FIBRILLATION
     Dosage: 2.5 MG, QOD
     Route: 048
  4. COUMADIN [Concomitant]
     Dosage: 1.25 MG, QOD
     Route: 048
  5. CARDIZEM [Concomitant]
     Dosage: 120 MG, QOD
     Route: 048
  6. CARDIZEM [Concomitant]
     Dosage: 180 MG, QOD
     Route: 048

REACTIONS (5)
  - BLOOD CHOLESTEROL INCREASED [None]
  - BLOOD CREATININE INCREASED [None]
  - BLOOD TRIGLYCERIDES INCREASED [None]
  - BLOOD UREA INCREASED [None]
  - WEIGHT INCREASED [None]
